FAERS Safety Report 8988264 (Version 2)
Quarter: 2013Q1

REPORT INFORMATION
  Report Type: Spontaneous
  Country: US (occurrence: US)
  Receive Date: 20121227
  Receipt Date: 20130110
  Transmission Date: 20140127
  Serious: Yes (Hospitalization, Other)
  Sender: FDA-Public Use
  Company Number: US-009507513-2012SP004596

PATIENT
  Sex: 0

DRUGS (4)
  1. NUVARING [Suspect]
     Indication: PELVIC PAIN
     Dosage: UNK
     Dates: start: 20090327, end: 20100130
  2. NUVARING [Suspect]
     Indication: OVULATION DISORDER
  3. ASCORBIC ACID [Concomitant]
     Dosage: UNK
     Dates: start: 200901, end: 200912
  4. VITAMIN B COMPLEX [Concomitant]
     Dosage: UNK
     Dates: start: 200901, end: 200912

REACTIONS (10)
  - Pulmonary embolism [Unknown]
  - Chest pain [Unknown]
  - Off label use [Unknown]
  - Pain in extremity [Unknown]
  - Fall [Unknown]
  - Chest pain [Unknown]
  - Back pain [Not Recovered/Not Resolved]
  - Back injury [Unknown]
  - Road traffic accident [Unknown]
  - Neck injury [Unknown]
